FAERS Safety Report 11967628 (Version 1)
Quarter: 2016Q1

REPORT INFORMATION
  Report Type: Spontaneous
  Country: US (occurrence: US)
  Receive Date: 20160127
  Receipt Date: 20160127
  Transmission Date: 20160526
  Serious: Yes (Hospitalization)
  Sender: FDA-Public Use
  Company Number: US-AMGEN-USASP2016008203

PATIENT
  Age: 35 Year
  Sex: Male

DRUGS (1)
  1. VECTIBIX [Suspect]
     Active Substance: PANITUMUMAB
     Indication: COLORECTAL CANCER METASTATIC
     Dosage: 800 MG, UNK
     Route: 065
     Dates: start: 20160108

REACTIONS (3)
  - Skin toxicity [Unknown]
  - Multimorbidity [Unknown]
  - Pain [Unknown]

NARRATIVE: CASE EVENT DATE: 20160108
